FAERS Safety Report 5240120-5 (Version None)
Quarter: 2007Q1

REPORT INFORMATION
  Report Type: 
  Country: None (occurrence: None)
  Receive Date: 20070216
  Receipt Date: 20070207
  Transmission Date: 20070707
  Serious: Yes (Life-Threatening)
  Sender: FDA-Public Use
  Company Number: DE-PFIZER INC-2007010969

PATIENT

DRUGS (2)
  1. LYRICA [Suspect]
     Indication: POLYNEUROPATHY
     Dosage: DAILY DOSE:600MG
     Route: 048
  2. OPIOIDS [Concomitant]
     Indication: POLYNEUROPATHY

REACTIONS (2)
  - RESPIRATORY FAILURE [None]
  - SOMNOLENCE [None]
